FAERS Safety Report 7442398-6 (Version None)
Quarter: 2011Q2

REPORT INFORMATION
  Report Type: 
  Country: None (occurrence: None)
  Receive Date: 20110428
  Receipt Date: 20110404
  Transmission Date: 20111010
  Serious: Yes (Other)
  Sender: FDA-Public Use
  Company Number: FR-JNJFOC-20101000134

PATIENT
  Sex: Female
  Weight: 92 kg

DRUGS (8)
  1. TARDYFERON [Concomitant]
     Indication: ANAEMIA
     Route: 048
  2. RISPERDAL [Suspect]
     Route: 048
  3. PROCTOLOG [Concomitant]
     Indication: HAEMORRHOIDS
  4. RISPERDAL [Suspect]
     Indication: MANIA
     Route: 048
  5. RISPERDAL [Suspect]
     Route: 048
  6. SPECIAFOLDINE [Concomitant]
     Indication: SPINA BIFIDA
     Route: 048
  7. RISPERDAL [Suspect]
     Indication: AFFECTIVE DISORDER
     Route: 048
  8. FEMIBION [Concomitant]
     Indication: MEDICAL DIET
     Route: 048

REACTIONS (6)
  - CONDITION AGGRAVATED [None]
  - PREMATURE LABOUR [None]
  - OEDEMA PERIPHERAL [None]
  - HYPOTENSION [None]
  - DRUG EXPOSURE DURING PREGNANCY [None]
  - PROTEINURIA [None]
